FAERS Safety Report 8612425-9 (Version None)
Quarter: 2012Q3

REPORT INFORMATION
  Report Type: 
  Country: None (occurrence: None)
  Receive Date: 20120822
  Receipt Date: 20120816
  Transmission Date: 20120928
  Serious: Yes (Hospitalization)
  Sender: FDA-Public Use
  Company Number: JP-ABBOTT-12P-087-0971251-00

PATIENT
  Age: 41 Year
  Sex: Female

DRUGS (5)
  1. LUNABELL [Concomitant]
     Indication: ADENOMYOSIS
  2. ANALGESICS [Concomitant]
     Indication: PAIN
  3. LEUPROLIDE ACETATE [Suspect]
     Indication: ADENOMYOSIS
  4. LEUPROLIDE ACETATE [Suspect]
     Indication: MENORRHAGIA
     Route: 058
     Dates: start: 20110901, end: 20111201
  5. LUNABELL [Concomitant]
     Indication: MENORRHAGIA
     Route: 048
     Dates: start: 20111201, end: 20120201

REACTIONS (1)
  - BONE MARROW OEDEMA SYNDROME [None]
